FAERS Safety Report 16462828 (Version 1)
Quarter: 2019Q2

REPORT INFORMATION
  Report Type: Spontaneous
  Country: BG (occurrence: BG)
  Receive Date: 20190621
  Receipt Date: 20190621
  Transmission Date: 20190711
  Serious: Yes (Death)
  Sender: FDA-Public Use
  Company Number: BG-ROCHE-2338625

PATIENT
  Age: 71 Year
  Sex: Male

DRUGS (9)
  1. SODIUM CHLORIDE. [Concomitant]
     Active Substance: SODIUM CHLORIDE
     Route: 065
  2. SODIUM CHLORIDE. [Concomitant]
     Active Substance: SODIUM CHLORIDE
     Route: 065
  3. VICETIN [Concomitant]
     Dosage: 1 AMPOULE
     Route: 065
  4. PIRACETAM [Concomitant]
     Active Substance: PIRACETAM
     Dosage: 1 VIAL
     Route: 065
  5. NEOGLIM [Concomitant]
  6. ACTILYSE [Suspect]
     Active Substance: ALTEPLASE
     Indication: CEREBRAL INFARCTION
     Route: 042
     Dates: start: 20180406, end: 20180406
  7. CHLOPHAZOLIN [Concomitant]
     Active Substance: CLONIDINE HYDROCHLORIDE
     Dosage: 1/2 AMPOULE, 2 X 1/2 AMPOULE
     Route: 065
  8. SOMAZINA [CITICOLINE] [Concomitant]
     Dosage: 1 AMPOULE
     Route: 065
  9. QUAMATEL [Concomitant]
     Active Substance: FAMOTIDINE
     Dosage: 1 VIAL
     Route: 065

REACTIONS (8)
  - Coma [Fatal]
  - Apnoea [Fatal]
  - Brain oedema [Fatal]
  - Cerebral haemorrhage [Fatal]
  - Acute respiratory failure [Fatal]
  - Cardiac failure acute [Fatal]
  - Blood pressure increased [Fatal]
  - Somnolence [Fatal]

NARRATIVE: CASE EVENT DATE: 20180407
